FAERS Safety Report 9736272 (Version 2)
Quarter: 2013Q4

REPORT INFORMATION
  Report Type: Report from Study
  Country: BR (occurrence: BR)
  Receive Date: 20131206
  Receipt Date: 20131206
  Transmission Date: 20140711
  Serious: Yes (Hospitalization)
  Sender: FDA-Public Use
  Company Number: BR-ABBVIE-13P-020-1096008-00

PATIENT
  Age: 52 Year
  Sex: Male
  Weight: 63 kg

DRUGS (14)
  1. HUMIRA [Suspect]
     Indication: RHEUMATOID ARTHRITIS
     Route: 058
     Dates: start: 2011, end: 201304
  2. HUMIRA [Suspect]
     Route: 058
     Dates: start: 20130516
  3. PREDNISONE [Concomitant]
     Indication: RHEUMATOID ARTHRITIS
     Route: 048
     Dates: start: 2003
  4. PREDNISONE [Concomitant]
  5. TECNOMET [Concomitant]
     Indication: RHEUMATOID ARTHRITIS
     Route: 048
     Dates: start: 2008
  6. FOLIC ACID [Concomitant]
     Indication: VITAMIN SUPPLEMENTATION
     Route: 048
     Dates: start: 2008
  7. INSULIN [Concomitant]
     Indication: DIABETES MELLITUS
     Dosage: 10 SYRINGES PER DAY
     Route: 058
  8. LOSARTAN [Concomitant]
     Indication: HYPERTENSION
     Route: 048
     Dates: start: 2008
  9. LOSARTAN [Concomitant]
     Dosage: 1 TABLET IN THE MORNING AND 1 TABLET AT NIGHT
  10. ASPIRIN [Concomitant]
     Indication: HYPERTENSION
     Route: 048
  11. ASPIRIN [Concomitant]
     Indication: CARDIOVASCULAR DISORDER
  12. OMEPRAZOLE [Concomitant]
     Indication: GASTRIC DISORDER
     Route: 048
     Dates: start: 2009
  13. ETANERCEPT [Concomitant]
     Indication: PRODUCT USED FOR UNKNOWN INDICATION
     Route: 042
  14. ACHEFLAN [Concomitant]
     Indication: PAIN

REACTIONS (5)
  - Hyperkeratosis [Recovered/Resolved]
  - Pneumonia [Recovered/Resolved]
  - Hyperkeratosis [Recovering/Resolving]
  - Drug ineffective [Unknown]
  - Localised infection [Recovered/Resolved]
